FAERS Safety Report 5481751-7 (Version None)
Quarter: 2007Q4

REPORT INFORMATION
  Report Type: 
  Country: None (occurrence: None)
  Receive Date: 20071010
  Receipt Date: 20070927
  Transmission Date: 20080405
  Serious: Yes (Other)
  Sender: FDA-Public Use
  Company Number: DE-SHR-DE-2007-037495

PATIENT
  Age: 38 Year
  Sex: Female
  Weight: 168 kg

DRUGS (2)
  1. BETASERON [Suspect]
     Indication: PROGRESSIVE MULTIPLE SCLEROSIS
     Dates: start: 20030101, end: 20070801
  2. HORMONES AND RELATED AGENTS [Concomitant]
     Indication: CONTRACEPTION

REACTIONS (2)
  - APPLICATION SITE ATROPHY [None]
  - APPLICATION SITE FISSURE [None]
